FAERS Safety Report 10451916 (Version 6)
Quarter: 2014Q4

REPORT INFORMATION
  Report Type: Report from Study
  Country: JP (occurrence: JP)
  Receive Date: 20140915
  Receipt Date: 20141223
  Transmission Date: 20150528
  Serious: Yes (Hospitalization)
  Sender: FDA-Public Use
  Company Number: JP-BIOGENIDEC-2014BI092659

PATIENT
  Age: 66 Year
  Sex: Male
  Weight: 49 kg

DRUGS (9)
  1. MECOBALAMIN [Concomitant]
     Active Substance: METHYLCOBALAMIN
     Indication: SPINAL OSTEOARTHRITIS
     Route: 048
     Dates: start: 20110603
  2. PREGABALIN. [Concomitant]
     Active Substance: PREGABALIN
     Indication: SPINAL OSTEOARTHRITIS
     Route: 048
     Dates: start: 20140513
  3. SODIUM RABEPRAZOLE [Concomitant]
     Active Substance: RABEPRAZOLE SODIUM
     Indication: ABDOMINAL DISCOMFORT
     Route: 048
     Dates: start: 20110714
  4. KETOPROFEN. [Concomitant]
     Active Substance: KETOPROFEN
     Indication: HAEMOPHILIC ARTHROPATHY
     Route: 061
     Dates: start: 20031120
  5. TRANEXAMIC ACID. [Concomitant]
     Active Substance: TRANEXAMIC ACID
     Indication: TONGUE BITING
     Route: 048
     Dates: start: 20140904, end: 20140905
  6. RFIXFC [Suspect]
     Active Substance: EFTRENONACOG ALFA
     Indication: FACTOR IX DEFICIENCY
     Route: 042
  7. FELBINAC [Concomitant]
     Active Substance: FELBINAC
     Indication: SPINAL OSTEOARTHRITIS
     Route: 061
     Dates: start: 20130820
  8. RFIXFC [Suspect]
     Active Substance: EFTRENONACOG ALFA
     Indication: FACTOR IX DEFICIENCY
     Route: 042
     Dates: start: 20110404
  9. TOCOPHEROL NICOTINATE [Concomitant]
     Indication: SPINAL OSTEOARTHRITIS
     Route: 048
     Dates: start: 20120612

REACTIONS (1)
  - Enterocolitis [Recovered/Resolved]

NARRATIVE: CASE EVENT DATE: 20140909
